FAERS Safety Report 6138606-4 (Version None)
Quarter: 2009Q1

REPORT INFORMATION
  Report Type: 
  Country: None (occurrence: None)
  Receive Date: 20090327
  Receipt Date: 20090311
  Transmission Date: 20090719
  Serious: Yes (Hospitalization)
  Sender: FDA-Public Use
  Company Number: 2009S1004652

PATIENT
  Age: 45 Year
  Sex: Male

DRUGS (1)
  1. ENALAPRIL MALEATE [Suspect]
     Indication: HYPERTENSION
     Dosage: 10 MG;DAILY ORAL
     Route: 048

REACTIONS (1)
  - HYPERGLYCAEMIA [None]
